FAERS Safety Report 5207058-0 (Version None)
Quarter: 2007Q1

REPORT INFORMATION
  Report Type: 
  Country: None (occurrence: None)
  Receive Date: 20070112
  Receipt Date: 20070110
  Transmission Date: 20070707
  Serious: Yes (Life-Threatening)
  Sender: FDA-Public Use
  Company Number: 2007UW00589

PATIENT
  Sex: Female

DRUGS (2)
  1. SEROQUEL [Suspect]
     Dosage: 180 COUNT OF 25 MG TABS
     Route: 048
     Dates: start: 20061228
  2. SEROQUEL [Suspect]
     Route: 048

REACTIONS (2)
  - CARDIAC ARREST [None]
  - OVERDOSE [None]
